FAERS Safety Report 10276110 (Version 2)
Quarter: 2014Q3

REPORT INFORMATION
  Report Type: Spontaneous
  Country: US (occurrence: None)
  Receive Date: 20140701
  Receipt Date: 20140711
  Transmission Date: 20150326
  Serious: Yes (Hospitalization)
  Sender: FDA-Public Use
  Company Number: 2014-US-007519

PATIENT
  Age: 66 Year
  Sex: Female
  Weight: 59 kg

DRUGS (12)
  1. LISINOPRIL (LISINOPRIL) [Concomitant]
     Active Substance: LISINOPRIL
  2. XYREM [Suspect]
     Active Substance: SODIUM OXYBATE
     Indication: NARCOLEPSY
     Route: 048
     Dates: start: 200210, end: 2007
  3. ARICEPT [Concomitant]
     Active Substance: DONEPEZIL HYDROCHLORIDE
  4. CILOSTAZOL (CILOSTAZOL) [Concomitant]
  5. NUVIGIL [Concomitant]
     Active Substance: ARMODAFINIL
  6. LIPITOR [Concomitant]
     Active Substance: ATORVASTATIN CALCIUM
  7. SYNTHROID [Concomitant]
     Active Substance: LEVOTHYROXINE SODIUM
  8. TEMAZEPAM (TEMAZEPAM) [Concomitant]
     Active Substance: TEMAZEPAM
  9. VICODIN [Concomitant]
     Active Substance: ACETAMINOPHEN\HYDROCODONE BITARTRATE
  10. XYREM [Suspect]
     Active Substance: SODIUM OXYBATE
     Indication: CATAPLEXY
     Route: 048
     Dates: start: 200210, end: 2007
  11. GABAPENTIN (GABAPENTIN) [Concomitant]
     Active Substance: GABAPENTIN
  12. PREMARIN (PREMARIN) [Concomitant]

REACTIONS (1)
  - Vascular stent insertion [None]

NARRATIVE: CASE EVENT DATE: 20140529
